FAERS Safety Report 12189172 (Version 2)
Quarter: 2016Q1

REPORT INFORMATION
  Report Type: Spontaneous
  Country: GB (occurrence: CY)
  Receive Date: 20160317
  Receipt Date: 20160324
  Transmission Date: 20160526
  Serious: Yes (Death, Other)
  Sender: FDA-Public Use
  Company Number: GB-009507513-1603CYP007550

PATIENT
  Age: 42 Year
  Sex: Male

DRUGS (4)
  1. ETIZOLAM [Suspect]
     Active Substance: ETIZOLAM
     Dosage: UNK
  2. OLANZAPINE. [Suspect]
     Active Substance: OLANZAPINE
  3. MIRTAZAPINE. [Suspect]
     Active Substance: MIRTAZAPINE
     Dosage: UNK
     Route: 048
  4. EPHEDRINE. [Suspect]
     Active Substance: EPHEDRINE
     Dosage: UNK

REACTIONS (2)
  - Toxicity to various agents [Fatal]
  - Myocardial infarction [Fatal]
